FAERS Safety Report 24567995 (Version 1)
Quarter: 2024Q4

REPORT INFORMATION
  Report Type: Spontaneous
  Country: FR (occurrence: FR)
  Receive Date: 20241031
  Receipt Date: 20241031
  Transmission Date: 20250115
  Serious: Yes (Other)
  Sender: UCB
  Company Number: None

PATIENT
  Age: 36 Year
  Sex: Female
  Weight: 96 kg

DRUGS (4)
  1. KEPPRA [Suspect]
     Active Substance: LEVETIRACETAM
     Indication: Status epilepticus
     Dosage: 2.5 GRAM, DAILY
     Route: 042
     Dates: start: 20240905, end: 20241014
  2. URAPIDIL HYDROCHLORIDE [Suspect]
     Active Substance: URAPIDIL HYDROCHLORIDE
     Indication: Hypertension
     Dosage: 5973 MILLIGRAM, VARABLE
     Route: 042
     Dates: start: 20240923, end: 20241001
  3. CEFAZOLIN [Suspect]
     Active Substance: CEFAZOLIN
     Indication: Antibiotic therapy
     Dosage: 28 GRAM, VARIABLE
     Route: 042
     Dates: start: 20240924, end: 20240929
  4. CEFTAZIDIME [Suspect]
     Active Substance: CEFTAZIDIME
     Indication: Antibiotic therapy
     Dosage: 30 GRAM, 2-6 GM/DAY
     Route: 042
     Dates: start: 20240924, end: 20240929

REACTIONS (3)
  - Confusional state [Recovered/Resolved]
  - Hallucination, visual [Recovered/Resolved]
  - Affective disorder [Recovered/Resolved]

NARRATIVE: CASE EVENT DATE: 20240930
